FAERS Safety Report 13052250 (Version 5)
Quarter: 2017Q2

REPORT INFORMATION
  Report Type: Spontaneous
  Country: US (occurrence: US)
  Receive Date: 20161221
  Receipt Date: 20170418
  Transmission Date: 20170830
  Serious: Yes (Other)
  Sender: FDA-Public Use
  Company Number: US-ALEXION PHARMACEUTICALS INC.-A201609951

PATIENT
  Sex: Male

DRUGS (1)
  1. STRENSIQ [Suspect]
     Active Substance: ASFOTASE ALFA
     Indication: HYPOPHOSPHATASIA
     Dosage: UNK
     Route: 058

REACTIONS (11)
  - Arthralgia [Unknown]
  - Injection site swelling [Unknown]
  - Injection site atrophy [Unknown]
  - Muscle atrophy [Unknown]
  - Injection site reaction [Unknown]
  - Burning sensation [Unknown]
  - Injection site pain [Unknown]
  - Dialysis related complication [Unknown]
  - Muscle hypertrophy [Unknown]
  - Fistula [Unknown]
  - Dehydration [Unknown]

NARRATIVE: CASE EVENT DATE: 20161205
